FAERS Safety Report 25615897 (Version 1)
Quarter: 2025Q3

REPORT INFORMATION
  Report Type: Spontaneous
  Country: US (occurrence: US)
  Receive Date: 20250729
  Receipt Date: 20250729
  Transmission Date: 20251021
  Serious: No
  Sender: BAUSCH AND LOMB
  Company Number: US-BAUSCHBL-2025BNL012795

PATIENT
  Sex: Female

DRUGS (1)
  1. VYZULTA [Suspect]
     Active Substance: LATANOPROSTENE BUNOD
     Indication: Product used for unknown indication
     Route: 048

REACTIONS (3)
  - Erythema [Recovered/Resolved]
  - Ill-defined disorder [Recovered/Resolved]
  - Intraocular pressure test abnormal [Recovered/Resolved]
